FAERS Safety Report 21200996 (Version 1)
Quarter: 2022Q3

REPORT INFORMATION
  Report Type: Spontaneous
  Country: PL (occurrence: PL)
  Receive Date: 20220811
  Receipt Date: 20220811
  Transmission Date: 20221026
  Serious: Yes (Hospitalization, Other)
  Sender: FDA-Public Use
  Company Number: PL-SLATE RUN PHARMACEUTICALS-22PL001261

PATIENT

DRUGS (22)
  1. METOPROLOL SUCCINATE [Suspect]
     Active Substance: METOPROLOL SUCCINATE
     Indication: Hypertension
     Dosage: 200 MILLIGRAM, MORNING
  2. PSEUDOEPHEDRINE [Suspect]
     Active Substance: PSEUDOEPHEDRINE
     Indication: Product used for unknown indication
     Dosage: UNK
  3. VALSARTAN [Concomitant]
     Active Substance: VALSARTAN
     Indication: Hypertension
     Dosage: 640 MILLIGRAM, EVENING
  4. VALSARTAN [Concomitant]
     Active Substance: VALSARTAN
     Dosage: 640 MILLIGRAM, MORNING
  5. VALSARTAN [Concomitant]
     Active Substance: VALSARTAN
     Dosage: 160 MILLIGRAM, EVENING
  6. VALSARTAN [Concomitant]
     Active Substance: VALSARTAN
     Dosage: 320 MILLIGRAM, MORNING
  7. NITRENDIPINE [Concomitant]
     Active Substance: NITRENDIPINE
     Indication: Hypertension
     Dosage: 60 MILLIGRAM
  8. NITRENDIPINE [Concomitant]
     Active Substance: NITRENDIPINE
     Dosage: 40 MILLIGRAM, EVENING
  9. NITRENDIPINE [Concomitant]
     Active Substance: NITRENDIPINE
     Dosage: 40 MILLIGRAM, MORNING
  10. INDAPAMIDE [Concomitant]
     Active Substance: INDAPAMIDE
     Indication: Hypertension
     Dosage: 2.5 MILLIGRAM, MORNING
  11. TORSEMIDE [Concomitant]
     Active Substance: TORSEMIDE
     Indication: Hypertension
     Dosage: 20 MILLIGRAM, MORNING
  12. TORSEMIDE [Concomitant]
     Active Substance: TORSEMIDE
     Dosage: 10 MILLIGRAM, MORNING
  13. SPIRONOLACTONE [Concomitant]
     Active Substance: SPIRONOLACTONE
     Indication: Hypertension
     Dosage: 100 MILLIGRAM, AT NOON
  14. SPIRONOLACTONE [Concomitant]
     Active Substance: SPIRONOLACTONE
     Dosage: 100 MILLIGRAM, AT NOON
  15. DOXAZOSIN [Concomitant]
     Active Substance: DOXAZOSIN MESYLATE
     Indication: Hypertension
     Dosage: 8 MILLIGRAM, EVENING
  16. DOXAZOSIN [Concomitant]
     Active Substance: DOXAZOSIN MESYLATE
     Dosage: 12 MILLIGRAM, MORNING
  17. DOXAZOSIN [Concomitant]
     Active Substance: DOXAZOSIN MESYLATE
     Dosage: 8 MILLIGRAM, EVENING
  18. DOXAZOSIN [Concomitant]
     Active Substance: DOXAZOSIN MESYLATE
     Dosage: 4 MILLIGRAM, MORNING
  19. CLONIDINE [Concomitant]
     Active Substance: CLONIDINE
     Indication: Hypertension
     Dosage: 0.45 MILLIGRAM
  20. CLONIDINE [Concomitant]
     Active Substance: CLONIDINE
     Dosage: 0.15 MILLIGRAM
  21. METHYLDOPA [Concomitant]
     Active Substance: METHYLDOPA
     Indication: Hypertension
     Dosage: 1500 MILLIGRAM
     Route: 048
  22. METHYLDOPA [Concomitant]
     Active Substance: METHYLDOPA
     Dosage: 1500 MILLIGRAM

REACTIONS (9)
  - Sinus tachycardia [Unknown]
  - Accelerated idioventricular rhythm [Unknown]
  - Pneumothorax [Unknown]
  - Subcutaneous emphysema [Unknown]
  - Haemoglobin decreased [Unknown]
  - Epistaxis [Unknown]
  - Toxicity to various agents [Unknown]
  - Munchausen^s syndrome [Unknown]
  - Hypertension [Unknown]
